FAERS Safety Report 13188663 (Version 5)
Quarter: 2017Q1

REPORT INFORMATION
  Report Type: Spontaneous
  Country: JP (occurrence: JP)
  Receive Date: 20170206
  Receipt Date: 20170308
  Transmission Date: 20170428
  Serious: Yes (Hospitalization, Other)
  Sender: FDA-Public Use
  Company Number: JP-GLAXOSMITHKLINE-JP2017JPN012420

PATIENT
  Age: 37 Year
  Sex: Male
  Weight: 50 kg

DRUGS (15)
  1. FEBURIC [Concomitant]
     Active Substance: FEBUXOSTAT
     Dosage: UNK
  2. THYRADIN S [Concomitant]
     Active Substance: LEVOTHYROXINE SODIUM
     Dosage: UNK
  3. CALONAL [Concomitant]
     Active Substance: ACETAMINOPHEN
     Dosage: UNK
  4. PROTECADIN [Concomitant]
     Active Substance: LAFUTIDINE
     Dosage: UNK
  5. BILANOA [Concomitant]
     Dosage: UNK
  6. METHYCOBAL [Concomitant]
     Active Substance: METHYLCOBALAMIN
     Dosage: UNK
  7. ZOVIRAX [Concomitant]
     Active Substance: ACYCLOVIR
     Dosage: UNK
  8. L-CARTIN [Concomitant]
     Active Substance: LEVOCARNITINE HYDROCHLORIDE
     Dosage: UNK
  9. P-TOL [Concomitant]
     Active Substance: FERRIC OXYHYDROXIDE
     Dosage: UNK
  10. VALTREX [Suspect]
     Active Substance: VALACYCLOVIR HYDROCHLORIDE
     Indication: HERPES SIMPLEX
  11. PREDONINE [Concomitant]
     Active Substance: PREDNISOLONE
     Dosage: UNK
  12. NORVASC [Concomitant]
     Active Substance: AMLODIPINE BESYLATE
     Dosage: UNK
  13. PRECIPITATED CALCIUM CARBONATE [Concomitant]
     Active Substance: CALCIUM CARBONATE
     Dosage: UNK
  14. AZUNOL [Concomitant]
     Active Substance: SODIUM GUALENATE
     Dosage: UNK
  15. VALTREX [Suspect]
     Active Substance: VALACYCLOVIR HYDROCHLORIDE
     Indication: HERPES ZOSTER
     Dosage: 500 MG, 1D
     Route: 048
     Dates: start: 20170127, end: 20170128

REACTIONS (4)
  - Toxic encephalopathy [Recovering/Resolving]
  - Muscular weakness [Recovered/Resolved]
  - Gait disturbance [Recovered/Resolved]
  - Dysarthria [Recovered/Resolved]

NARRATIVE: CASE EVENT DATE: 20170128
